FAERS Safety Report 15977488 (Version 2)
Quarter: 2019Q2

REPORT INFORMATION
  Report Type: Report from Study
  Country: EG (occurrence: EG)
  Receive Date: 20190218
  Receipt Date: 20190401
  Transmission Date: 20190711
  Serious: Yes (Other)
  Sender: FDA-Public Use
  Company Number: PHHY2019EG035829

PATIENT
  Age: 52 Year
  Sex: Male

DRUGS (3)
  1. GLIVEC [Suspect]
     Active Substance: IMATINIB MESYLATE
     Indication: CHRONIC MYELOID LEUKAEMIA
     Dosage: 400 MG, QD
     Route: 048
     Dates: start: 2014
  2. CLINDAM [Concomitant]
     Indication: TOOTH DISORDER
     Route: 065
  3. DALACIN C [Concomitant]
     Active Substance: CLINDAMYCIN PHOSPHATE
     Indication: TOOTH DISORDER

REACTIONS (7)
  - Ocular hyperaemia [Recovering/Resolving]
  - Generalised erythema [Recovering/Resolving]
  - White blood cell count increased [Unknown]
  - Hepatic enzyme increased [Unknown]
  - Abdominal rigidity [Recovering/Resolving]
  - Constipation [Recovering/Resolving]
  - Renal impairment [Unknown]

NARRATIVE: CASE EVENT DATE: 201807
